FAERS Safety Report 4897629-3 (Version None)
Quarter: 2006Q1

REPORT INFORMATION
  Report Type: 
  Country: None (occurrence: None)
  Receive Date: 20060201
  Receipt Date: 20060118
  Transmission Date: 20060701
  Serious: Yes (Life-Threatening)
  Sender: FDA-Public Use
  Company Number: CL-JNJFOC-20060106109

PATIENT
  Age: 30 Year
  Sex: Male

DRUGS (1)
  1. TRAMAL [Suspect]
     Indication: DRUG USE FOR UNKNOWN INDICATION
     Dates: start: 20040220

REACTIONS (1)
  - RESPIRATORY ARREST [None]
